FAERS Safety Report 10273496 (Version 1)
Quarter: 2014Q1

REPORT INFORMATION
  Report Type: Spontaneous
  Country: US (occurrence: None)
  Receive Date: 20140306
  Receipt Date: 20140306
  Transmission Date: 20141002
  Serious: Yes (Other)
  Sender: FDA-Public Use
  Company Number: 163-21880-13082319

PATIENT
  Age: 86 Year
  Sex: Female
  Weight: 116.2 kg

DRUGS (12)
  1. REVLIMID [Suspect]
     Indication: PLASMA CELL MYELOMA
     Route: 048
     Dates: start: 201011
  2. VELCADE (BORTEZOMIB) [Concomitant]
  3. DEXAMETHASONE (DEXAMETHASONE) [Concomitant]
  4. ALENDRONATE (ALENDRONATE SODIUM) [Concomitant]
  5. TOPROL XL (METOPROLOL SUCCINATE) (100 MILLIGRAM) (METOPROLOL SUCCINATE) [Concomitant]
  6. AMLODIPINE (AMLODIPINE) [Concomitant]
  7. ASPIRIN (ACETYLSALICYLIC ACID) [Concomitant]
  8. LOSARTAN (LOSARTAN) [Concomitant]
  9. POTASSIUM CHLORIDE (POTASSIUM CHLORIDE) [Concomitant]
  10. PRILOSEC (OMEPRAZOLE) [Concomitant]
  11. ZOLOFT (SERTRALINE HYDROCHLORIDE) [Concomitant]
  12. SANDOSTATIN (OCTREOTIDE ACETATE) [Concomitant]

REACTIONS (3)
  - Pancytopenia [None]
  - Anaemia [None]
  - Diarrhoea [None]
